FAERS Safety Report 9049737 (Version 1)
Quarter: 2013Q1

REPORT INFORMATION
  Report Type: Report from Study
  Country: US (occurrence: US)
  Receive Date: 20130205
  Receipt Date: 20130205
  Transmission Date: 20140127
  Serious: Yes (Other)
  Sender: FDA-Public Use
  Company Number: US-ROCHE-1183412

PATIENT
  Sex: 0

DRUGS (2)
  1. MYCOPHENOLATE MOFETIL [Suspect]
     Indication: TYPE 1 DIABETES MELLITUS
     Dosage: (MAXIMUM 2000 MG/DAY) IN 2?3 DOSES FOR 2 YEARS.
     Route: 065
  2. DACLIZUMAB [Suspect]
     Indication: TYPE 1 DIABETES MELLITUS
     Dosage: DAY 0 AND 2 WEEKS
     Route: 042

REACTIONS (8)
  - Oral herpes [Unknown]
  - Genital herpes [Unknown]
  - Oral herpes [Unknown]
  - Infectious mononucleosis [Unknown]
  - Epstein-Barr virus infection [Unknown]
  - Epstein-Barr virus infection [Unknown]
  - Cytomegalovirus infection [Unknown]
  - Herpes simplex [Unknown]
